FAERS Safety Report 4766411-X (Version None)
Quarter: 2005Q3

REPORT INFORMATION
  Report Type: 
  Country: None (occurrence: None)
  Receive Date: 20050912
  Receipt Date: 20050902
  Transmission Date: 20060218
  Serious: Yes (Other)
  Sender: FDA-Public Use
  Company Number: US-JNJFOC-20050901470

PATIENT
  Sex: Female
  Weight: 63.5 kg

DRUGS (5)
  1. ORTHO EVRA [Suspect]
     Indication: CONTRACEPTION
     Route: 062
     Dates: start: 20050501, end: 20050901
  2. EXCEDRIN [Concomitant]
  3. EXCEDRIN [Concomitant]
  4. EXCEDRIN [Concomitant]
  5. EXCEDRIN [Concomitant]
     Indication: MIGRAINE

REACTIONS (4)
  - HYPOAESTHESIA [None]
  - LOSS OF CONSCIOUSNESS [None]
  - MIGRAINE [None]
  - NAUSEA [None]
